FAERS Safety Report 24221886 (Version 2)
Quarter: 2024Q4

REPORT INFORMATION
  Report Type: Report from Study
  Country: US (occurrence: US)
  Receive Date: 20240819
  Receipt Date: 20241231
  Transmission Date: 20250115
  Serious: Yes (Other)
  Sender: ABBVIE
  Company Number: US-ABBVIE-5881895

PATIENT
  Age: 65 Year
  Sex: Female

DRUGS (2)
  1. SKYRIZI [Suspect]
     Active Substance: RISANKIZUMAB-RZAA
     Indication: Psoriasis
     Dosage: LAST ADMIN DATE - 2024
     Route: 058
     Dates: start: 20240430
  2. SKYRIZI [Suspect]
     Active Substance: RISANKIZUMAB-RZAA
     Route: 058
     Dates: start: 20240501

REACTIONS (5)
  - Coronary artery bypass [Recovering/Resolving]
  - Arthritis [Not Recovered/Not Resolved]
  - Joint lock [Unknown]
  - Spondylitis [Not Recovered/Not Resolved]
  - Shoulder arthroplasty [Unknown]

NARRATIVE: CASE EVENT DATE: 20240605
